FAERS Safety Report 5941604-4 (Version None)
Quarter: 2008Q4

REPORT INFORMATION
  Report Type: 
  Country: None (occurrence: None)
  Receive Date: 20081103
  Receipt Date: 20081023
  Transmission Date: 20090506
  Serious: Yes (Other)
  Sender: FDA-Public Use
  Company Number: 2008AP002859

PATIENT
  Age: 35 Year
  Sex: Female

DRUGS (2)
  1. RISPERDAL [Suspect]
     Indication: DEPRESSION
  2. RISPERDAL [Suspect]
     Indication: PSYCHOTIC DISORDER

REACTIONS (2)
  - BRAIN OEDEMA [None]
  - PULMONARY OEDEMA [None]
